FAERS Safety Report 15214471 (Version 1)
Quarter: 2018Q3

REPORT INFORMATION
  Report Type: Report from Study
  Country: IL (occurrence: IL)
  Receive Date: 20180730
  Receipt Date: 20180730
  Transmission Date: 20181010
  Serious: Yes (Other)
  Sender: FDA-Public Use
  Company Number: IL-TEVA-2018-IL-933925

PATIENT
  Age: 3 Year
  Sex: Female

DRUGS (1)
  1. AMOXICILLIN. [Suspect]
     Active Substance: AMOXICILLIN
     Dosage: RECEIVED 10% OF THE TH. DOSE; 30% OF TH. DOSE AFTER 20 MIN.; 60% OF TH. DOSE AFTER ANOTHER 20 MIN.
     Route: 048

REACTIONS (4)
  - Type IV hypersensitivity reaction [Unknown]
  - Dermatitis allergic [Unknown]
  - Allergic respiratory symptom [Unknown]
  - Angioedema [Unknown]
